FAERS Safety Report 8501220-7 (Version None)
Quarter: 2012Q3

REPORT INFORMATION
  Report Type: 
  Country: None (occurrence: None)
  Receive Date: 20120710
  Receipt Date: 20120625
  Transmission Date: 20120928
  Serious: Yes (Death)
  Sender: FDA-Public Use
  Company Number: FR-ARROW-2012-11551

PATIENT
  Age: 58 Year
  Sex: Male

DRUGS (13)
  1. PIPERACILLIN AND TAZOBACTAM [Suspect]
     Indication: PNEUMONIA
     Dosage: UNK
     Route: 065
  2. CASPOFUNGIN ACETATE [Suspect]
     Indication: SYSTEMIC CANDIDA
  3. VORICONAZOLE [Suspect]
     Indication: PNEUMOCYSTIS JIROVECI PNEUMONIA
  4. FLUCONAZOLE [Suspect]
     Indication: SYSTEMIC CANDIDA
  5. CIPROFLOXACIN HCL [Suspect]
     Indication: PNEUMOCYSTIS JIROVECI PNEUMONIA
  6. FLUCONAZOLE [Suspect]
     Indication: BRONCHOPULMONARY ASPERGILLOSIS
     Dosage: UNK
     Route: 065
  7. CASPOFUNGIN ACETATE [Suspect]
     Indication: PNEUMOCYSTIS JIROVECI PNEUMONIA
  8. VORICONAZOLE [Suspect]
     Indication: SYSTEMIC CANDIDA
  9. FLUCONAZOLE [Suspect]
     Indication: PNEUMOCYSTIS JIROVECI PNEUMONIA
  10. CASPOFUNGIN ACETATE [Suspect]
     Indication: BRONCHOPULMONARY ASPERGILLOSIS
     Dosage: UNK
     Route: 065
  11. VORICONAZOLE [Suspect]
     Indication: BRONCHOPULMONARY ASPERGILLOSIS
     Dosage: UNK
     Route: 065
  12. CIPROFLOXACIN HCL [Suspect]
     Indication: BRONCHOPULMONARY ASPERGILLOSIS
     Dosage: UNK
     Route: 065
  13. CIPROFLOXACIN HCL [Suspect]
     Indication: SYSTEMIC CANDIDA

REACTIONS (2)
  - DRUG INEFFECTIVE [None]
  - MULTI-ORGAN FAILURE [None]
